FAERS Safety Report 8973614 (Version 1)
Quarter: 2012Q4

REPORT INFORMATION
  Report Type: 
  Country: US (occurrence: US)
  Receive Date: 20121218
  Receipt Date: 20121218
  Transmission Date: 20130627
  Serious: Yes (Other)
  Sender: FDA-Public Use
  Company Number: US-BRISTOL-MYERS SQUIBB COMPANY-16425423

PATIENT
  Age: 50 Year
  Sex: Female

DRUGS (4)
  1. ABILIFY TABS [Suspect]
     Indication: DEPRESSION
     Dosage: 2mg intially
incresaed to 5mg qd in Jan2012.
Interrupted on 04feb12
Restarted on 28Feb12.
     Route: 048
     Dates: start: 20120104
  2. COGENTIN [Suspect]
  3. CYMBALTA [Concomitant]
  4. BENZTROPINE [Concomitant]
     Dosage: then decresaed to 1mg QD

REACTIONS (5)
  - Suicidal ideation [Unknown]
  - Musculoskeletal stiffness [Recovering/Resolving]
  - Arthralgia [Unknown]
  - Joint swelling [Unknown]
  - Myalgia [Unknown]
